FAERS Safety Report 8267121-7 (Version None)
Quarter: 2012Q2

REPORT INFORMATION
  Report Type: 
  Country: None (occurrence: None)
  Receive Date: 20120409
  Receipt Date: 20120326
  Transmission Date: 20120825
  Serious: Yes (Other)
  Sender: FDA-Public Use
  Company Number: DE-JNJFOC-20120402323

PATIENT
  Sex: Male
  Weight: 93 kg

DRUGS (2)
  1. XARELTO [Suspect]
     Indication: ILL-DEFINED DISORDER
     Route: 048
  2. CEFUROXIME [Concomitant]
     Indication: PREOPERATIVE CARE
     Dates: start: 20120314, end: 20120319

REACTIONS (1)
  - DRUG ERUPTION [None]
